FAERS Safety Report 7059802-8 (Version None)
Quarter: 2010Q4

REPORT INFORMATION
  Report Type: 
  Country: None (occurrence: None)
  Receive Date: 20101025
  Receipt Date: 20101013
  Transmission Date: 20110411
  Serious: Yes (Life-Threatening, Hospitalization, Other)
  Sender: FDA-Public Use
  Company Number: JP-PFIZER INC-2010124574

PATIENT
  Age: 85 Year
  Sex: Female
  Weight: 40 kg

DRUGS (7)
  1. LYRICA [Suspect]
     Indication: POST HERPETIC NEURALGIA
     Dosage: 75 MG, 2X/DAY
     Route: 048
     Dates: start: 20100720, end: 20100730
  2. LYRICA [Interacting]
     Indication: PAIN
     Dosage: 75 MG, 2X/DAY
     Route: 048
     Dates: start: 20100928, end: 20100930
  3. TEGRETOL [Interacting]
     Indication: POST HERPETIC NEURALGIA
     Dosage: 100 MG, 4X/DAY
     Route: 048
     Dates: start: 20100922
  4. TEGRETOL [Interacting]
     Indication: PAIN
     Dosage: 100 MG, 2X/DAY
     Route: 048
     Dates: start: 20100908, end: 20100921
  5. TEGRETOL [Interacting]
     Dosage: 100 MG, 3X/DAY
     Route: 048
     Dates: start: 20100728, end: 20100907
  6. TRYPTANOL [Interacting]
     Dosage: 10 MG, 2X/DAY
  7. DEPAS [Interacting]
     Dosage: 0.5 MG, DAILY

REACTIONS (12)
  - ALTERED STATE OF CONSCIOUSNESS [None]
  - ASTHENIA [None]
  - CARDIAC FAILURE [None]
  - DECREASED APPETITE [None]
  - DRUG INTERACTION [None]
  - FATIGUE [None]
  - HYPERKALAEMIA [None]
  - HYPONATRAEMIA [None]
  - MALAISE [None]
  - NAUSEA [None]
  - PAIN [None]
  - SOMNOLENCE [None]
